FAERS Safety Report 13125281 (Version 1)
Quarter: 2017Q1

REPORT INFORMATION
  Report Type: Spontaneous
  Country: US (occurrence: US)
  Receive Date: 20170118
  Receipt Date: 20170118
  Transmission Date: 20170428
  Serious: Yes (Other)
  Sender: FDA-Public Use
  Company Number: US-VALIDUS PHARMACEUTICALS LLC-US-2016VAL000070

PATIENT

DRUGS (1)
  1. NORPRAMINE [Suspect]
     Active Substance: DESIPRAMINE
     Indication: DEPRESSION
     Dosage: START DATE: SEVERAL YEARS AGOSTOP DATE: 1 MONTH AGO
     Route: 048

REACTIONS (1)
  - Suicidal ideation [Not Recovered/Not Resolved]
